FAERS Safety Report 6274617-6 (Version None)
Quarter: 2009Q3

REPORT INFORMATION
  Report Type: 
  Country: None (occurrence: None)
  Receive Date: 20090717
  Receipt Date: 20090708
  Transmission Date: 20100115
  Serious: Yes (Other)
  Sender: FDA-Public Use
  Company Number: ALL1-2009-01866

PATIENT
  Age: 39 Year
  Sex: Female
  Weight: 86.2 kg

DRUGS (5)
  1. VYVANSE [Suspect]
     Indication: ATTENTION DEFICIT/HYPERACTIVITY DISORDER
     Dosage: 50 MG, 2X/DAY, BID; ORAL
     Route: 048
  2. LAMICTAL [Concomitant]
  3. XANAX [Concomitant]
  4. ATENOLOL [Concomitant]
  5. RESTORIL (CHLORMEZANONE) TABLET [Concomitant]

REACTIONS (12)
  - ANXIETY [None]
  - BACK PAIN [None]
  - CYSTITIS [None]
  - DRUG INEFFECTIVE [None]
  - DYSPEPSIA [None]
  - FEELING JITTERY [None]
  - INAPPROPRIATE SCHEDULE OF DRUG ADMINISTRATION [None]
  - MUSCULOSKELETAL PAIN [None]
  - NUCLEAR MAGNETIC RESONANCE IMAGING ABNORMAL [None]
  - OVERDOSE [None]
  - ROAD TRAFFIC ACCIDENT [None]
  - ULTRASOUND KIDNEY ABNORMAL [None]
